FAERS Safety Report 25054759 (Version 1)
Quarter: 2025Q1

REPORT INFORMATION
  Report Type: Report from Study
  Country: US (occurrence: US)
  Receive Date: 20250308
  Receipt Date: 20250308
  Transmission Date: 20250409
  Serious: Yes (Other)
  Sender: ABBVIE
  Company Number: US-ABBVIE-5656016

PATIENT
  Age: 72 Year
  Sex: Male

DRUGS (1)
  1. HUMIRA [Suspect]
     Active Substance: ADALIMUMAB
     Indication: Rheumatoid arthritis
     Route: 058
     Dates: start: 20140713

REACTIONS (7)
  - Coronary arterial stent insertion [Recovered/Resolved]
  - Joint lock [Not Recovered/Not Resolved]
  - Tinnitus [Unknown]
  - Psoriatic arthropathy [Not Recovered/Not Resolved]
  - Skin irritation [Not Recovered/Not Resolved]
  - Post-traumatic stress disorder [Unknown]
  - Glaucoma [Recovering/Resolving]

NARRATIVE: CASE EVENT DATE: 20140813
